FAERS Safety Report 11123362 (Version 1)
Quarter: 2015Q2

REPORT INFORMATION
  Report Type: Spontaneous
  Country: US (occurrence: US)
  Receive Date: 20150519
  Receipt Date: 20150519
  Transmission Date: 20150821
  Serious: No
  Sender: FDA-Public Use
  Company Number: US-AUXILIUM PHARMACEUTICALS INC.-201502115

PATIENT
  Sex: Male
  Weight: 88.53 kg

DRUGS (4)
  1. NOVOLIN [Concomitant]
     Active Substance: INSULIN HUMAN
     Dosage: 70/30
  2. XIAFLEX [Suspect]
     Active Substance: COLLAGENASE CLOSTRIDIUM HISTOLYTICUM
     Indication: PEYRONIE^S DISEASE
     Route: 026
  3. ATENOLOL. [Concomitant]
     Active Substance: ATENOLOL
  4. CLONAZEPAM. [Concomitant]
     Active Substance: CLONAZEPAM

REACTIONS (1)
  - Swelling [Unknown]
